FAERS Safety Report 6345545-2 (Version None)
Quarter: 2009Q3

REPORT INFORMATION
  Report Type: 
  Country: None (occurrence: None)
  Receive Date: 20090909
  Receipt Date: 20090826
  Transmission Date: 20100115
  Serious: Yes (Hospitalization)
  Sender: FDA-Public Use
  Company Number: JP-PFIZER INC-2009261100

PATIENT
  Age: 67 Year

DRUGS (2)
  1. MEDROL [Suspect]
     Dosage: 4 MG, 1X/DAY
     Route: 048
  2. RHEUMATREX [Concomitant]
     Dosage: 6 MG, WEEKLY
     Route: 048

REACTIONS (2)
  - EYE OPERATION [None]
  - HAEMORRHAGE SUBCUTANEOUS [None]
